FAERS Safety Report 5239347-8 (Version None)
Quarter: 2007Q1

REPORT INFORMATION
  Report Type: 
  Country: None (occurrence: None)
  Receive Date: 20070216
  Receipt Date: 20070207
  Transmission Date: 20070707
  Serious: Yes (Hospitalization)
  Sender: FDA-Public Use
  Company Number: SE-JNJFOC-20070202261

PATIENT
  Age: 64 Year
  Sex: Male

DRUGS (6)
  1. REMICADE [Suspect]
     Indication: RHEUMATOID ARTHRITIS
  2. METOPROLOL SUCCINATE [Concomitant]
     Route: 065
  3. FELODIPINE ACTAVIS [Concomitant]
     Route: 065
  4. CALCICHEW D3 [Concomitant]
     Route: 048
  5. IMUREL [Concomitant]
     Indication: RHEUMATOID ARTHRITIS
     Route: 065
  6. PANTOPRAZOLE SODIUM [Concomitant]
     Route: 065

REACTIONS (6)
  - ANTINUCLEAR ANTIBODY POSITIVE [None]
  - COAGULATION TIME PROLONGED [None]
  - EOSINOPHILIC PNEUMONIA [None]
  - EPISTAXIS [None]
  - INTERNATIONAL NORMALISED RATIO INCREASED [None]
  - LIVER FUNCTION TEST ABNORMAL [None]
